FAERS Safety Report 6061357-1 (Version None)
Quarter: 2009Q1

REPORT INFORMATION
  Report Type: 
  Country: None (occurrence: None)
  Receive Date: 20090129
  Receipt Date: 20090129
  Transmission Date: 20090719
  Serious: Yes (Other)
  Sender: FDA-Public Use
  Company Number: None

PATIENT
  Sex: Female
  Weight: 74.8435 kg

DRUGS (2)
  1. CYMBALTA [Suspect]
     Indication: ANXIETY
     Dosage: 1 PILL DAILY PO
     Route: 048
     Dates: start: 20080501, end: 20090128
  2. CYMBALTA [Suspect]
     Indication: DEPRESSION
     Dosage: 1 PILL DAILY PO
     Route: 048
     Dates: start: 20080501, end: 20090128

REACTIONS (6)
  - ACTIVITIES OF DAILY LIVING IMPAIRED [None]
  - DRUG DEPENDENCE [None]
  - JOB DISSATISFACTION [None]
  - NERVOUS SYSTEM DISORDER [None]
  - PARAESTHESIA [None]
  - WITHDRAWAL SYNDROME [None]
